FAERS Safety Report 7183403 (Version 2)
Quarter: 2013Q2

REPORT INFORMATION
  Report Type: Report from Study
  Country: GB (occurrence: GB)
  Receive Date: 20091120
  Receipt Date: 20130520
  Transmission Date: 20140414
  Serious: Yes (Death, Hospitalization)
  Sender: FDA-Public Use
  Company Number: GB-CELGENEUS-167-50794-09111195

PATIENT
  Age: 55 Year
  Sex: Male
  Weight: 64.4 kg

DRUGS (8)
  1. VIDAZA [Suspect]
     Indication: ACUTE MYELOID LEUKAEMIA
     Dosage: 130 MILLIGRAM
     Route: 050
     Dates: start: 20090908
  2. SODIUM VALPROATE [Suspect]
     Indication: ACUTE MYELOID LEUKAEMIA
     Route: 065
     Dates: start: 20091007
  3. ATRA [Suspect]
     Indication: ACUTE MYELOID LEUKAEMIA
     Dosage: 70 MILLIGRAM
     Route: 065
  4. THEOPHYLLINE [Suspect]
     Indication: ACUTE MYELOID LEUKAEMIA
     Dosage: 175 MILLIGRAM
     Route: 065
  5. OXYGEN [Concomitant]
     Indication: LANGERHANS^ CELL HISTIOCYTOSIS
     Route: 055
  6. MST [Concomitant]
     Indication: PAIN
     Dosage: 80 MILLIGRAM
     Route: 048
     Dates: start: 20091005
  7. ORAMORPH [Concomitant]
     Indication: PRODUCT USED FOR UNKNOWN INDICATION
     Route: 065
     Dates: start: 20091002
  8. HYDROXYUREA [Concomitant]
     Indication: PRODUCT USED FOR UNKNOWN INDICATION
     Route: 065

REACTIONS (2)
  - Acute myeloid leukaemia [Fatal]
  - Dyspnoea [Not Recovered/Not Resolved]
